FAERS Safety Report 7358478-X (Version None)
Quarter: 2011Q1

REPORT INFORMATION
  Report Type: 
  Country: None (occurrence: None)
  Receive Date: 20110317
  Receipt Date: 20110311
  Transmission Date: 20110831
  Serious: Yes (Hospitalization)
  Sender: FDA-Public Use
  Company Number: US-ELI_LILLY_AND_COMPANY-US200909006430

PATIENT
  Sex: Female

DRUGS (4)
  1. FORTEO [Suspect]
     Dosage: 20 UG, DAILY (1/D)
  2. FORTEO [Suspect]
     Dosage: 20 UG, DAILY (1/D)
  3. FORTEO [Suspect]
     Indication: OSTEOPOROSIS
     Dosage: 20 UG, DAILY (1/D)
     Dates: start: 20090923
  4. MULTIVITAMIN [Concomitant]
     Dosage: UNK, UNKNOWN

REACTIONS (9)
  - HIATUS HERNIA [None]
  - CARDIAC DISORDER [None]
  - DRUG DOSE OMISSION [None]
  - DYSPHAGIA [None]
  - MALAISE [None]
  - CHEST PAIN [None]
  - INJECTION SITE HAEMATOMA [None]
  - LUNG DISORDER [None]
  - DYSPNOEA [None]
